FAERS Safety Report 10489366 (Version 6)
Quarter: 2015Q3

REPORT INFORMATION
  Report Type: Report from Study
  Country: IT (occurrence: IT)
  Receive Date: 20141002
  Receipt Date: 20150807
  Transmission Date: 20151125
  Serious: Yes (Hospitalization, Disabling, Other)
  Sender: FDA-Public Use
  Company Number: IT-JNJFOC-20140925578

PATIENT
  Age: 15 Year
  Sex: Male
  Weight: 30 kg

DRUGS (3)
  1. REMICADE [Suspect]
     Active Substance: INFLIXIMAB
     Indication: CROHN^S DISEASE
     Route: 042
     Dates: start: 20110405
  2. DELTACORTENE [Concomitant]
     Active Substance: PREDNISONE
     Dosage: FOR 10 DAYS
     Route: 065
  3. ACYCLOVIR. [Concomitant]
     Active Substance: ACYCLOVIR
     Dosage: FOR TEN DAYS
     Route: 065

REACTIONS (2)
  - Myelitis transverse [Recovered/Resolved with Sequelae]
  - Optic neuritis [Recovered/Resolved with Sequelae]

NARRATIVE: CASE EVENT DATE: 20140902
